FAERS Safety Report 8150036-2 (Version None)
Quarter: 2012Q1

REPORT INFORMATION
  Report Type: 
  Country: None (occurrence: None)
  Receive Date: 20120219
  Receipt Date: 20111219
  Transmission Date: 20120608
  Serious: Yes (Other)
  Sender: FDA-Public Use
  Company Number: PHHY2011JP110017

PATIENT
  Age: 70 Year
  Sex: Male

DRUGS (4)
  1. PLAVIX [Suspect]
     Route: 048
  2. ASPIRIN [Concomitant]
     Route: 048
  3. BETAXOLOL HYDROCHLORIDE [Concomitant]
     Indication: HYPERTENSION
     Route: 048
  4. DIOVAN HCT [Suspect]
     Indication: HYPERTENSION
     Dosage: 1 DF, DAILY
     Route: 048

REACTIONS (4)
  - HEPATIC FUNCTION ABNORMAL [None]
  - HEPATIC STEATOSIS [None]
  - DIABETES MELLITUS [None]
  - BLOOD GLUCOSE INCREASED [None]
